FAERS Safety Report 8190241-2 (Version None)
Quarter: 2012Q1

REPORT INFORMATION
  Report Type: 
  Country: None (occurrence: None)
  Receive Date: 20120307
  Receipt Date: 20120222
  Transmission Date: 20120608
  Serious: Yes (Hospitalization)
  Sender: FDA-Public Use
  Company Number: GB-MYLANLABS-2012S1004235

PATIENT
  Age: 51 Year
  Sex: Male

DRUGS (2)
  1. SIMVASTATIN [Suspect]
     Indication: HYPERCHOLESTEROLAEMIA
     Dosage: 40MG
     Route: 065
  2. METFORMIN [Concomitant]
     Route: 065

REACTIONS (1)
  - THROMBOTIC THROMBOCYTOPENIC PURPURA [None]
